FAERS Safety Report 14542134 (Version 1)
Quarter: 2018Q1

REPORT INFORMATION
  Report Type: Spontaneous
  Country: US (occurrence: US)
  Receive Date: 20180216
  Receipt Date: 20180216
  Transmission Date: 20180509
  Serious: Yes (Hospitalization, Other)
  Sender: FDA-Public Use
  Company Number: US-OTSUKA-DJ201302279

PATIENT

DRUGS (1)
  1. ABILIFY [Suspect]
     Active Substance: ARIPIPRAZOLE
     Route: 065
     Dates: start: 2009

REACTIONS (7)
  - Weight decreased [Unknown]
  - Loss of consciousness [Unknown]
  - Memory impairment [Unknown]
  - Confusional state [Unknown]
  - Muscle disorder [Unknown]
  - Hallucination [Unknown]
  - Ataxia [Unknown]
